FAERS Safety Report 8333006-0 (Version None)
Quarter: 2012Q1

REPORT INFORMATION
  Report Type: 
  Country: None (occurrence: None)
  Receive Date: 20120327
  Receipt Date: 20110407
  Transmission Date: 20120608
  Serious: Yes (Hospitalization)
  Sender: FDA-Public Use
  Company Number: PHHY2011US10686

PATIENT
  Age: 61 Year
  Sex: Female

DRUGS (3)
  1. GLEEVEC [Suspect]
     Indication: GASTROINTESTINAL STROMAL TUMOUR
     Dosage: ORAL ; 400 MG, QD, ORAL
     Route: 048
     Dates: start: 20101231
  2. GLEEVEC [Suspect]
     Indication: GASTROINTESTINAL STROMAL TUMOUR
     Dosage: ORAL ; 400 MG, QD, ORAL
     Route: 048
     Dates: start: 20110111
  3. NORVASC [Concomitant]

REACTIONS (7)
  - BLOOD PRESSURE INCREASED [None]
  - MYOCARDIAL INFARCTION [None]
  - VOMITING [None]
  - DIARRHOEA [None]
  - MALAISE [None]
  - ELECTROCARDIOGRAM ABNORMAL [None]
  - CARDIAC ENZYMES INCREASED [None]
